FAERS Safety Report 9891696 (Version 1)
Quarter: 2014Q1

REPORT INFORMATION
  Report Type: Spontaneous
  Country: US (occurrence: None)
  Receive Date: 20140210
  Receipt Date: 20140210
  Transmission Date: 20141002
  Serious: Yes (Death)
  Sender: FDA-Public Use
  Company Number: 2014010133

PATIENT
  Age: 43 Year
  Sex: Female

DRUGS (6)
  1. ZOLPIDEM (ZOLPIDEM) [Suspect]
  2. OXYCODONE (OXYCODONE) [Suspect]
  3. SKELETAL MUSCLE RELAXANT [Suspect]
  4. ALPRAZOLAM (ALPRAZOLAM) [Suspect]
  5. TRAZODONE (TRAZODONE) [Suspect]
  6. ACETAMINOPHEN (ACETAMINOPHEN) [Suspect]

REACTIONS (2)
  - Drug abuse [None]
  - Exposure via ingestion [None]
